FAERS Safety Report 14447076 (Version 7)
Quarter: 2018Q3

REPORT INFORMATION
  Report Type: Spontaneous
  Country: US (occurrence: US)
  Receive Date: 20180126
  Receipt Date: 20180815
  Transmission Date: 20181010
  Serious: Yes (Other)
  Sender: FDA-Public Use
  Company Number: US-009507513-1801USA007333

PATIENT
  Age: 30 Year
  Sex: Female
  Weight: 160.7 kg

DRUGS (2)
  1. NEXPLANON [Suspect]
     Active Substance: ETONOGESTREL
     Indication: CONTRACEPTION
     Dosage: 1 IMPLANT EVERY THREE YEAR, ON LEFT ARM
     Route: 023
     Dates: start: 20170525
  2. NEXPLANON [Suspect]
     Active Substance: ETONOGESTREL
     Dosage: 1 IMPLANT EVERY THREE YEAR, ON LEFT ARM
     Route: 023
     Dates: start: 20140602, end: 20170525

REACTIONS (7)
  - Pregnancy with implant contraceptive [Not Recovered/Not Resolved]
  - Device expulsion [Unknown]
  - Implant site fibrosis [Unknown]
  - Complication associated with device [Not Recovered/Not Resolved]
  - Complication of device insertion [Recovered/Resolved]
  - Complication of device removal [Recovered/Resolved]
  - Unintended pregnancy [Recovered/Resolved]

NARRATIVE: CASE EVENT DATE: 20170525
